FAERS Safety Report 9094555 (Version 1)
Quarter: 2013Q1

REPORT INFORMATION
  Report Type: Spontaneous
  Country: AR (occurrence: AR)
  Receive Date: 20130219
  Receipt Date: 20130219
  Transmission Date: 20140127
  Serious: Yes (Other)
  Sender: FDA-Public Use
  Company Number: PHHY2012AR127514

PATIENT
  Age: 68 Year
  Sex: Female

DRUGS (1)
  1. DIOVAN [Suspect]
     Indication: HYPERTENSION
     Dosage: 160 MG, DAILY
     Route: 048
     Dates: start: 201112

REACTIONS (6)
  - Foot deformity [Unknown]
  - Hypertension [Recovering/Resolving]
  - Abasia [Unknown]
  - Malaise [Unknown]
  - Nervousness [Unknown]
  - No therapeutic response [Recovering/Resolving]
